FAERS Safety Report 16260934 (Version 1)
Quarter: 2019Q2

REPORT INFORMATION
  Report Type: Spontaneous
  Country: US (occurrence: US)
  Receive Date: 20190501
  Receipt Date: 20190501
  Transmission Date: 20190711
  Serious: Yes (Other)
  Sender: FDA-Public Use
  Company Number: US-ALEXION-A201904846

PATIENT
  Age: 34 Year
  Sex: Male
  Weight: 57.14 kg

DRUGS (3)
  1. ULTOMIRIS [Suspect]
     Active Substance: RAVULIZUMAB-CWVZ
     Dosage: 3000 MG, Q8WEEKS
     Route: 042
     Dates: start: 20190206
  2. ULTOMIRIS [Suspect]
     Active Substance: RAVULIZUMAB-CWVZ
     Indication: PAROXYSMAL NOCTURNAL HAEMOGLOBINURIA
     Dosage: 2400 MG, UNK
     Route: 042
     Dates: start: 20190124
  3. ULTOMIRIS [Suspect]
     Active Substance: RAVULIZUMAB-CWVZ
     Dosage: 3000 MG, UNK
     Route: 042
     Dates: start: 20190130

REACTIONS (11)
  - Haptoglobin decreased [Not Recovered/Not Resolved]
  - Fatigue [Recovered/Resolved]
  - Chromaturia [Unknown]
  - Haemoglobin decreased [Unknown]
  - Upper respiratory tract infection [Recovered/Resolved]
  - Hepatic function abnormal [Unknown]
  - Jaundice [Recovered/Resolved]
  - Back pain [Recovered/Resolved]
  - White blood cell count decreased [Unknown]
  - Symptom recurrence [Recovered/Resolved]
  - Blood bilirubin increased [Unknown]

NARRATIVE: CASE EVENT DATE: 20190326
